FAERS Safety Report 4725636-X (Version None)
Quarter: 2005Q3

REPORT INFORMATION
  Report Type: 
  Country: None (occurrence: None)
  Receive Date: 20050727
  Receipt Date: 20030210
  Transmission Date: 20060218
  Serious: Yes (Death, Hospitalization, Other)
  Sender: FDA-Public Use
  Company Number: US-MERCK-0302USA01156

PATIENT
  Age: 47 Year
  Sex: Male

DRUGS (6)
  1. VIOXX [Suspect]
     Indication: CHEST WALL PAIN
     Route: 048
     Dates: start: 20020507, end: 20021225
  2. ZESTRIL [Concomitant]
     Indication: HYPERTENSION
     Route: 065
     Dates: end: 20021225
  3. LIPITOR [Concomitant]
     Route: 065
     Dates: end: 20021225
  4. NORVASC [Concomitant]
     Route: 065
     Dates: end: 20021225
  5. ACETAMINOPHEN AND HYDROCODONE BITARTRATE [Concomitant]
     Route: 065
     Dates: end: 20021225
  6. BACTROBAN [Concomitant]
     Route: 065
     Dates: end: 20021225

REACTIONS (7)
  - ARTHRALGIA [None]
  - CARDIAC ARREST [None]
  - CORONARY ARTERY ATHEROSCLEROSIS [None]
  - DEPRESSION [None]
  - LIMB INJURY [None]
  - PAIN IN EXTREMITY [None]
  - PULMONARY OEDEMA [None]
